FAERS Safety Report 9594450 (Version 1)
Quarter: 2013Q3

REPORT INFORMATION
  Report Type: Spontaneous
  Country: US (occurrence: None)
  Receive Date: 20130927
  Receipt Date: 20130927
  Transmission Date: 20140515
  Serious: Yes (Other)
  Sender: FDA-Public Use
  Company Number: CABO-13002999

PATIENT
  Age: 64 Year
  Sex: Female
  Weight: 56.4 kg

DRUGS (1)
  1. COMETRIQ [Suspect]
     Indication: THYROID CANCER
     Route: 048
     Dates: start: 20130323, end: 201307

REACTIONS (1)
  - Cystitis [None]
